FAERS Safety Report 23531799 (Version 1)
Quarter: 2024Q1

REPORT INFORMATION
  Report Type: Spontaneous
  Country: US (occurrence: US)
  Receive Date: 20240216
  Receipt Date: 20240216
  Transmission Date: 20240410
  Serious: Yes (Other)
  Sender: FDA-Public Use
  Company Number: US-INSUD PHARMA-2402US01282

PATIENT

DRUGS (2)
  1. TESTOSTERONE [Suspect]
     Active Substance: TESTOSTERONE
     Indication: Secondary hypogonadism
     Dosage: TESTOSTERONE PROPIONATE 25 MG DAILY
     Route: 030
  2. SOMATROPIN [Concomitant]
     Active Substance: SOMATROPIN
     Indication: Growth hormone deficiency
     Dosage: 1.6 MG DAILY
     Route: 030

REACTIONS (2)
  - Renal failure [Unknown]
  - Focal segmental glomerulosclerosis [Unknown]

NARRATIVE: CASE EVENT DATE: 20230101
